FAERS Safety Report 12834644 (Version 3)
Quarter: 2019Q4

REPORT INFORMATION
  Report Type: Spontaneous
  Country: US (occurrence: US)
  Receive Date: 20161010
  Receipt Date: 20191230
  Transmission Date: 20200122
  Serious: No
  Sender: FDA-Public Use
  Company Number: US-PFIZER INC-2016472402

PATIENT
  Age: 47 Year
  Sex: Male
  Weight: 106.59 kg

DRUGS (2)
  1. VIAGRA [Suspect]
     Active Substance: SILDENAFIL CITRATE
     Indication: ERECTILE DYSFUNCTION
     Dosage: 50 MG, 1X/DAY
     Dates: start: 201607
  2. VIAGRA [Suspect]
     Active Substance: SILDENAFIL CITRATE
     Dosage: 25 MG, 1X/DAY (25 MG, ONE TIME)
     Dates: start: 201908

REACTIONS (3)
  - Weight decreased [Unknown]
  - Ejaculation disorder [Not Recovered/Not Resolved]
  - Erection increased [Not Recovered/Not Resolved]

NARRATIVE: CASE EVENT DATE: 201908
